FAERS Safety Report 9496697 (Version 3)
Quarter: 2013Q4

REPORT INFORMATION
  Report Type: Spontaneous
  Country: US (occurrence: US)
  Receive Date: 20130904
  Receipt Date: 20131018
  Transmission Date: 20140711
  Serious: Yes (Hospitalization, Other)
  Sender: FDA-Public Use
  Company Number: US-GE HEALTHCARE MEDICAL DIAGNOSTICS-INDT-PR-1308S-0004

PATIENT
  Age: 42 Year
  Sex: Female

DRUGS (2)
  1. INDIUM IN111 DTPA [Suspect]
     Indication: INTRACRANIAL HYPOTENSION
     Route: 037
     Dates: start: 20130822, end: 20130822
  2. INDIUM IN111 DTPA [Suspect]
     Indication: DIAGNOSTIC PROCEDURE

REACTIONS (1)
  - Meningitis aseptic [Recovered/Resolved]
